FAERS Safety Report 5961334-2 (Version None)
Quarter: 2008Q4

REPORT INFORMATION
  Report Type: 
  Country: None (occurrence: None)
  Receive Date: 20081121
  Receipt Date: 20081117
  Transmission Date: 20090506
  Serious: Yes (Hospitalization, Other)
  Sender: FDA-Public Use
  Company Number: US-TEVA-180798USA

PATIENT
  Age: 17 Year
  Sex: Male

DRUGS (1)
  1. PAMIDRONATE DISODIUM [Suspect]
     Indication: BONE PAIN

REACTIONS (3)
  - BONE DEVELOPMENT ABNORMAL [None]
  - OSTEOPENIA [None]
  - OSTEOSCLEROSIS [None]
